FAERS Safety Report 5871213-7 (Version None)
Quarter: 2008Q3

REPORT INFORMATION
  Report Type: 
  Country: None (occurrence: None)
  Receive Date: 20080829
  Receipt Date: 20071107
  Transmission Date: 20090109
  Serious: Yes (Hospitalization)
  Sender: FDA-Public Use
  Company Number: 2007-01105FE

PATIENT
  Age: 74 Year
  Sex: Female

DRUGS (1)
  1. LHRH () (GONADORELIN) [Suspect]
     Indication: DIAGNOSTIC PROCEDURE
     Dosage: IV
     Route: 042

REACTIONS (10)
  - ALTERED STATE OF CONSCIOUSNESS [None]
  - BLINDNESS UNILATERAL [None]
  - EXTRAOCULAR MUSCLE PARESIS [None]
  - HEADACHE [None]
  - HEMIANOPIA HETERONYMOUS [None]
  - NEOPLASM PROGRESSION [None]
  - PITUITARY HAEMORRHAGE [None]
  - VISUAL ACUITY REDUCED [None]
  - VISUAL FIELD DEFECT [None]
  - VOMITING [None]
